FAERS Safety Report 4401068-9 (Version None)
Quarter: 2004Q3

REPORT INFORMATION
  Report Type: 
  Country: None (occurrence: None)
  Receive Date: 20040907
  Receipt Date: 20031014
  Transmission Date: 20050211
  Serious: No
  Sender: FDA-Public Use
  Company Number: US-BRISTOL-MYERS SQUIBB COMPANY-12410999

PATIENT
  Age: 76 Year
  Sex: Male
  Weight: 95 kg

DRUGS (4)
  1. COUMADIN [Suspect]
     Indication: CARDIAC DISORDER
     Dosage: AS OF MAY-04: 2.5 MG TWICE DAILY (TOTAL 5.0 MG DAILY)
     Route: 048
     Dates: start: 20030101
  2. BETAPACE TABS 160 MG [Concomitant]
  3. LEVSIN PB [Concomitant]
  4. PRILOSEC [Concomitant]

REACTIONS (4)
  - BURNING SENSATION [None]
  - FEELING ABNORMAL [None]
  - INTERNATIONAL NORMALISED RATIO INCREASED [None]
  - PRURITUS [None]
